FAERS Safety Report 7762185-9 (Version None)
Quarter: 2011Q3

REPORT INFORMATION
  Report Type: 
  Country: None (occurrence: None)
  Receive Date: 20110825
  Receipt Date: 20110621
  Transmission Date: 20111222
  Serious: No
  Sender: FDA-Public Use
  Company Number: 330373

PATIENT
  Age: 53 Year
  Sex: Male

DRUGS (2)
  1. VICTOZA [Suspect]
     Indication: TYPE 2 DIABETES MELLITUS
     Dates: start: 20110501
  2. GLIPIZIDE [Concomitant]

REACTIONS (5)
  - NAUSEA [None]
  - VOMITING [None]
  - DIARRHOEA [None]
  - ERUCTATION [None]
  - BLOOD GLUCOSE DECREASED [None]
